FAERS Safety Report 5569587-X (Version None)
Quarter: 2007Q4

REPORT INFORMATION
  Report Type: 
  Country: None (occurrence: None)
  Receive Date: 20071220
  Receipt Date: 20071218
  Transmission Date: 20080405
  Serious: Yes (Hospitalization)
  Sender: FDA-Public Use
  Company Number: IT-ELI_LILLY_AND_COMPANY-IT200708002382

PATIENT
  Sex: Female

DRUGS (8)
  1. CYMBALTA [Suspect]
     Indication: DEPRESSION
     Dosage: 60 MG, DAILY (1/D)
     Route: 048
     Dates: start: 20060715, end: 20060920
  2. CYMBALTA [Suspect]
     Dosage: UNK, UNK
     Dates: start: 20070201, end: 20070222
  3. MEDROL [Concomitant]
  4. OSSEOR [Concomitant]
  5. NATECAL D [Concomitant]
  6. CRESTOR [Concomitant]
  7. ESOPRAL [Concomitant]
  8. DIAMICRON [Concomitant]

REACTIONS (3)
  - ARRHYTHMIA [None]
  - ATRIAL FIBRILLATION [None]
  - VOMITING [None]
